FAERS Safety Report 18784274 (Version 2)
Quarter: 2021Q1

REPORT INFORMATION
  Report Type: Spontaneous
  Country: US (occurrence: US)
  Receive Date: 20210125
  Receipt Date: 20210129
  Transmission Date: 20210419
  Serious: No
  Sender: FDA-Public Use
  Company Number: US-PFIZER INC-2020516936

PATIENT
  Age: 63 Year

DRUGS (1)
  1. EUCRISA [Suspect]
     Active Substance: CRISABOROLE
     Indication: MUSCULOSKELETAL DISORDER
     Dosage: UNK, AS NEEDED(AAA (APPLY TO AFFECTED AREA) BID (TWICE A DAY) PRN (AS NEEDED))

REACTIONS (2)
  - Skin disorder [Not Recovered/Not Resolved]
  - Off label use [Unknown]
